FAERS Safety Report 22214214 (Version 2)
Quarter: 2023Q2

REPORT INFORMATION
  Report Type: Spontaneous
  Country: US (occurrence: US)
  Receive Date: 20230414
  Receipt Date: 20230417
  Transmission Date: 20230722
  Serious: No
  Sender: FDA-Public Use
  Company Number: US-002147023-NVSC2023US086436

PATIENT
  Sex: Female

DRUGS (1)
  1. XIIDRA [Suspect]
     Active Substance: LIFITEGRAST
     Indication: Hypersensitivity
     Dosage: UNK
     Route: 047

REACTIONS (4)
  - Feeling abnormal [Unknown]
  - Eye irritation [Unknown]
  - Vision blurred [Unknown]
  - Product prescribing issue [Unknown]
